FAERS Safety Report 8340484 (Version 5)
Quarter: 2015Q4

REPORT INFORMATION
  Report Type: Report from Study
  Country: US (occurrence: US)
  Receive Date: 20120117
  Receipt Date: 20151125
  Transmission Date: 20160305
  Serious: Yes (Hospitalization)
  Sender: FDA-Public Use
  Company Number: US-ROCHE-1002587

PATIENT
  Age: 63 Year
  Sex: Female
  Weight: 122 kg

DRUGS (6)
  1. ARIXTRA [Concomitant]
     Active Substance: FONDAPARINUX SODIUM
  2. BEVACIZUMAB [Suspect]
     Active Substance: BEVACIZUMAB
     Indication: ENDOMETRIAL ADENOCARCINOMA
     Dosage: NO PRIOR RADIOTHERAPY: OVER 30-90 MINUTES ON DAY 1, STARTING WITH CYCLE 2 X6 CYCLES ?PRIOR RADIOTHER
     Route: 042
     Dates: start: 20110502
  3. PACLITAXEL. [Suspect]
     Active Substance: PACLITAXEL
     Dosage: PRIOR RADIOTHERAPY, OVER 3 HRS ON DAY 1 X 6 CYCLES
     Route: 042
  4. CARBOPLATIN. [Suspect]
     Active Substance: CARBOPLATIN
     Indication: ENDOMETRIAL ADENOCARCINOMA
     Dosage: NO PRIOR RADIOTHERAPY, AUC = 6 IV OVER 30 MINUTES ON DAY 1 X 6 CYCLES?PRIOR RADIOTHERAY, AUC = 5 IV
     Route: 042
     Dates: start: 20110502
  5. PACLITAXEL. [Suspect]
     Active Substance: PACLITAXEL
     Indication: ENDOMETRIAL ADENOCARCINOMA
     Dosage: NO PRIOR RADIOTHERAPY, OVER 3 HRS ON DAY 1 X 6 CYCLES
     Route: 042
     Dates: start: 20110502
  6. LYRICA [Concomitant]
     Active Substance: PREGABALIN

REACTIONS (18)
  - Vomiting [Recovered/Resolved]
  - Dehydration [Recovered/Resolved]
  - Hypoalbuminaemia [Recovered/Resolved]
  - Acute kidney injury [Recovering/Resolving]
  - Pain [Recovering/Resolving]
  - Hypocalcaemia [Recovered/Resolved]
  - Anaemia [Recovered/Resolved]
  - Nausea [Recovered/Resolved]
  - Diarrhoea [Recovered/Resolved]
  - Blood creatinine increased [Recovered/Resolved]
  - Hypokalaemia [Recovered/Resolved]
  - Hypomagnesaemia [Recovered/Resolved]
  - Haemoglobin decreased [Recovered/Resolved]
  - Skin ulcer [Recovering/Resolving]
  - Vaginal infection [Recovered/Resolved]
  - Hypokalaemia [Recovered/Resolved]
  - Dehydration [Recovered/Resolved]
  - Pain [Recovered/Resolved]

NARRATIVE: CASE EVENT DATE: 20110901
